FAERS Safety Report 24717241 (Version 1)
Quarter: 2024Q4

REPORT INFORMATION
  Report Type: Report from Study
  Country: CA (occurrence: CA)
  Receive Date: 20241210
  Receipt Date: 20241210
  Transmission Date: 20250115
  Serious: Yes (Other)
  Sender: CSL BEHRING
  Company Number: CA-BEH-2023164335

PATIENT
  Age: 68 Year
  Sex: Female
  Weight: 66 kg

DRUGS (8)
  1. HIZENTRA [Suspect]
     Active Substance: HUMAN IMMUNOGLOBULIN G
     Indication: Secondary immunodeficiency
     Dosage: 8 GRAM, QW
     Route: 065
     Dates: start: 20230918
  2. BRUKINSA [Concomitant]
     Active Substance: ZANUBRUTINIB
  3. VITAMIN D NOS [Concomitant]
     Active Substance: CHOLECALCIFEROL\ERGOCALCIFEROL
  4. VENLAFAXINE [Concomitant]
     Active Substance: VENLAFAXINE HYDROCHLORIDE
  5. PREMARIN [Concomitant]
     Active Substance: ESTROGENS, CONJUGATED
  6. BISOPROLOL [Concomitant]
     Active Substance: BISOPROLOL
  7. ASPIRIN [Concomitant]
     Active Substance: ASPIRIN
  8. CENTRUM FORTE [Concomitant]

REACTIONS (4)
  - Hip fracture [Unknown]
  - Walking aid user [Unknown]
  - Pain in extremity [Unknown]
  - Product use complaint [Unknown]
